FAERS Safety Report 24112818 (Version 1)
Quarter: 2024Q3

REPORT INFORMATION
  Report Type: Spontaneous
  Country: US (occurrence: US)
  Receive Date: 20240719
  Receipt Date: 20240719
  Transmission Date: 20241016
  Serious: Yes (Hospitalization, Other)
  Sender: DR REDDYS
  Company Number: US-DRL-USA-LIT/USA/24/0010383

PATIENT
  Age: 25 Year
  Sex: Female

DRUGS (5)
  1. OLANZAPINE [Suspect]
     Active Substance: OLANZAPINE
     Indication: Encephalopathy
  2. HALOPERIDOL [Concomitant]
     Active Substance: HALOPERIDOL
     Indication: Encephalopathy
  3. LORAZEPAM [Concomitant]
     Active Substance: LORAZEPAM
     Indication: Encephalopathy
  4. IFOSFAMIDE [Concomitant]
     Active Substance: IFOSFAMIDE
     Indication: Desmoplastic small round cell tumour
  5. ETOPOSIDE [Concomitant]
     Active Substance: ETOPOSIDE
     Indication: Desmoplastic small round cell tumour

REACTIONS (1)
  - Drug ineffective for unapproved indication [Unknown]
